FAERS Safety Report 6825904-1 (Version None)
Quarter: 2010Q3

REPORT INFORMATION
  Report Type: 
  Country: None (occurrence: None)
  Receive Date: 20100709
  Receipt Date: 20100112
  Transmission Date: 20110219
  Serious: Yes (Other)
  Sender: FDA-Public Use
  Company Number: GB-JNJFOC-20100701359

PATIENT
  Sex: Female

DRUGS (3)
  1. ACETAMINOPHEN AND CODEINE PHOSPHATE [Suspect]
     Indication: PRODUCT USED FOR UNKNOWN INDICATION
     Route: 065
  2. MIFEGYNE [Suspect]
     Indication: ABORTION INDUCED
     Route: 048
  3. MISOPROSTOL [Suspect]
     Indication: ABORTION INDUCED
     Route: 048

REACTIONS (2)
  - DYSPNOEA [None]
  - SWELLING FACE [None]
